FAERS Safety Report 10213833 (Version 3)
Quarter: 2020Q1

REPORT INFORMATION
  Report Type: Spontaneous
  Country: JP (occurrence: JP)
  Receive Date: 20140603
  Receipt Date: 20200217
  Transmission Date: 20200409
  Serious: No
  Sender: FDA-Public Use
  Company Number: JP-CELGENEUS-087-21880-14055142

PATIENT
  Age: 84 Year

DRUGS (7)
  1. LENADEX [Suspect]
     Active Substance: DEXAMETHASONE ACETATE
     Route: 048
     Dates: start: 201212, end: 201311
  2. LENADEX [Suspect]
     Active Substance: DEXAMETHASONE ACETATE
     Indication: PLASMA CELL MYELOMA
     Route: 048
     Dates: start: 20101007, end: 20131017
  3. REVLIMID [Suspect]
     Active Substance: LENALIDOMIDE
     Dosage: 5 MILLIGRAM
     Route: 048
     Dates: start: 20130403, end: 20131023
  4. BORTEZOMIB. [Concomitant]
     Active Substance: BORTEZOMIB
     Indication: PLASMA CELL MYELOMA
     Dosage: 1.5 MILLIGRAM
     Route: 065
     Dates: start: 201010
  5. BORTEZOMIB. [Concomitant]
     Active Substance: BORTEZOMIB
     Dosage: 1.5 MILLIGRAM
     Route: 065
     Dates: start: 201212
  6. BORTEZOMIB. [Concomitant]
     Active Substance: BORTEZOMIB
     Dosage: 1.5 MILLIGRAM
     Route: 065
     Dates: start: 201304, end: 201311
  7. REVLIMID [Suspect]
     Active Substance: LENALIDOMIDE
     Indication: PLASMA CELL MYELOMA
     Dosage: 5 MILLIGRAM
     Route: 048
     Dates: start: 20121206, end: 20130319

REACTIONS (2)
  - Pneumonia aspiration [Unknown]
  - Somnolence [Recovered/Resolved]

NARRATIVE: CASE EVENT DATE: 20120523
